FAERS Safety Report 20245605 (Version 14)
Quarter: 2024Q1

REPORT INFORMATION
  Report Type: Report from Study
  Country: DE (occurrence: DE)
  Receive Date: 20211229
  Receipt Date: 20240208
  Transmission Date: 20240410
  Serious: Yes (Hospitalization, Other)
  Sender: FDA-Public Use
  Company Number: DE-NOVARTISPH-NVSC2021DE290796

PATIENT
  Sex: Male
  Weight: 70 kg

DRUGS (25)
  1. MAYZENT [Suspect]
     Active Substance: SIPONIMOD
     Indication: Secondary progressive multiple sclerosis
     Dosage: 1 MG, QD
     Route: 048
     Dates: start: 20210823
  2. BACLOFEN [Concomitant]
     Active Substance: BACLOFEN
     Indication: Muscle spasticity
     Dosage: 10 MG, QD
     Route: 065
  3. CHOLECALCIFEROL [Concomitant]
     Active Substance: CHOLECALCIFEROL
     Indication: Vitamin D deficiency
     Dosage: 20000 IU, QD
     Route: 065
  4. CHOLECALCIFEROL [Concomitant]
     Active Substance: CHOLECALCIFEROL
     Dosage: 20 IU
     Route: 065
  5. EUTHYROX [Concomitant]
     Active Substance: LEVOTHYROXINE SODIUM
     Indication: Hypothyroidism
     Dosage: 75 UG, QD
     Route: 065
  6. METHIONINE [Concomitant]
     Active Substance: METHIONINE
     Indication: Supplementation therapy
     Dosage: 500 MG, QD
     Route: 065
  7. METHIONINE [Concomitant]
     Active Substance: METHIONINE
     Indication: Micturition disorder
  8. NABIXIMOLS [Concomitant]
     Active Substance: NABIXIMOLS
     Indication: Muscle spasticity
     Dosage: UNK
     Route: 065
  9. TAMSULOSIN [Concomitant]
     Active Substance: TAMSULOSIN
     Indication: Bladder dysfunction
     Dosage: 0.4 MG, QD
     Route: 065
  10. TAMSULOSIN [Concomitant]
     Active Substance: TAMSULOSIN
     Indication: Micturition disorder
  11. OXCARBAZEPINE [Concomitant]
     Active Substance: OXCARBAZEPINE
     Indication: Trigeminal neuralgia
     Dosage: 150 MG, QD
     Route: 065
     Dates: end: 20220518
  12. OXCARBAZEPINE [Concomitant]
     Active Substance: OXCARBAZEPINE
     Dosage: 150 MG, QD
     Route: 065
     Dates: start: 20220519, end: 20221129
  13. OXCARBAZEPINE [Concomitant]
     Active Substance: OXCARBAZEPINE
     Dosage: 4 DOSAGE FORM (FREQUENCY: 2-1-1)
     Route: 065
  14. OXCARBAZEPINE [Concomitant]
     Active Substance: OXCARBAZEPINE
     Dosage: 150 MG, QD
     Route: 065
     Dates: start: 20221130
  15. ENOXAPARIN SODIUM [Concomitant]
     Active Substance: ENOXAPARIN SODIUM
     Indication: Thrombosis prophylaxis
     Dosage: 4000 IU
     Route: 065
     Dates: start: 20230121
  16. METHIONINE [Concomitant]
     Active Substance: METHIONINE
     Indication: Urinary tract infection
     Dosage: 500 MG
     Route: 065
     Dates: start: 20230118
  17. ACETAMINOPHEN [Concomitant]
     Active Substance: ACETAMINOPHEN
     Indication: Urinary tract infection
     Dosage: 1000 MG
     Route: 065
     Dates: start: 20230118
  18. ACETAMINOPHEN [Concomitant]
     Active Substance: ACETAMINOPHEN
     Indication: Prophylaxis
  19. DIMENHYDRINATE [Concomitant]
     Active Substance: DIMENHYDRINATE
     Indication: Prophylaxis
     Dosage: 1 ML
     Route: 065
     Dates: start: 20230118
  20. BUTYLSCOPOLAMINE BROMIDE [Concomitant]
     Active Substance: BUTYLSCOPOLAMINE BROMIDE
     Indication: Prophylaxis
     Dosage: 25 MG
     Route: 065
     Dates: start: 20230330
  21. DOMPERIDONE [Concomitant]
     Active Substance: DOMPERIDONE
     Indication: Prophylaxis
     Dosage: 10 MG
     Route: 065
     Dates: start: 20230330
  22. IBUPROFEN [Concomitant]
     Active Substance: IBUPROFEN
     Indication: Prophylaxis
     Dosage: 600 MG
     Route: 065
     Dates: start: 20230330
  23. METAMIZOLE [Concomitant]
     Active Substance: METAMIZOLE
     Indication: Prophylaxis
     Dosage: 500 MG
     Route: 065
     Dates: start: 20230613
  24. PREGABALIN [Concomitant]
     Active Substance: PREGABALIN
     Indication: Neuralgia
     Dosage: 75 MG
     Route: 065
     Dates: start: 20230830
  25. METHYLPREDNISOLONE [Concomitant]
     Active Substance: METHYLPREDNISOLONE
     Indication: Trigeminal neuralgia
     Dosage: 1 G
     Route: 065
     Dates: start: 20231219

REACTIONS (14)
  - Urinary tract infection [Recovered/Resolved]
  - Urinary tract infection [Recovered/Resolved]
  - Pyrexia [Recovered/Resolved]
  - Urosepsis [Recovering/Resolving]
  - Lymphopenia [Not Recovered/Not Resolved]
  - Duodenal ulcer [Not Recovered/Not Resolved]
  - Gastritis [Not Recovered/Not Resolved]
  - Liver function test increased [Not Recovered/Not Resolved]
  - COVID-19 [Recovered/Resolved]
  - Headache [Recovered/Resolved]
  - Throat irritation [Recovered/Resolved]
  - General physical health deterioration [Recovered/Resolved]
  - Muscle spasticity [Recovered/Resolved]
  - Chills [Recovered/Resolved]

NARRATIVE: CASE EVENT DATE: 20210923
